FAERS Safety Report 9521149 (Version 1)
Quarter: 2013Q3

REPORT INFORMATION
  Report Type: Spontaneous
  Country: US (occurrence: US)
  Receive Date: 20130913
  Receipt Date: 20130913
  Transmission Date: 20140515
  Serious: No
  Sender: FDA-Public Use
  Company Number: US-PFIZER INC-2013261094

PATIENT
  Age: 67 Year
  Sex: Female
  Weight: 45.81 kg

DRUGS (3)
  1. ADVIL ALLERGY AND CONGESTION RELIEF [Suspect]
     Indication: HYPERSENSITIVITY
     Dosage: 200 MG, ONCE
     Route: 048
     Dates: start: 20130904, end: 20130904
  2. FISH OIL [Concomitant]
     Dosage: UNK
  3. CALCIUM [Concomitant]
     Dosage: UNK

REACTIONS (2)
  - Malaise [Unknown]
  - Mobility decreased [Unknown]
